FAERS Safety Report 4750513-8 (Version None)
Quarter: 2005Q3

REPORT INFORMATION
  Report Type: 
  Country: None (occurrence: None)
  Receive Date: 20050823
  Receipt Date: 20050308
  Transmission Date: 20060218
  Serious: Yes (Other)
  Sender: FDA-Public Use
  Company Number: US-MERCK-0503USA01374

PATIENT
  Age: 56 Year
  Sex: Male
  Weight: 86 kg

DRUGS (9)
  1. VIOXX [Suspect]
     Indication: SURGERY
     Route: 048
     Dates: start: 20020829, end: 20040922
  2. LOTREL [Concomitant]
     Route: 065
  3. LOTREL [Concomitant]
     Route: 065
  4. ATENOLOL MSD [Concomitant]
     Route: 065
  5. LIPITOR [Concomitant]
     Route: 065
  6. GLUCOVANCE [Concomitant]
     Route: 065
  7. ACTOS [Concomitant]
     Route: 065
  8. NEURONTIN [Concomitant]
     Route: 065
  9. ELAVIL [Concomitant]
     Route: 065

REACTIONS (3)
  - CEREBROVASCULAR ACCIDENT [None]
  - MYOCARDIAL INFARCTION [None]
  - VARICOSE VEIN [None]
